FAERS Safety Report 15955345 (Version 1)
Quarter: 2019Q1

REPORT INFORMATION
  Report Type: Spontaneous
  Country: US (occurrence: US)
  Receive Date: 20190213
  Receipt Date: 20190213
  Transmission Date: 20190417
  Serious: Yes (Hospitalization)
  Sender: FDA-Public Use
  Company Number: US-CONCORDIA PHARMACEUTICALS INC.-GSH201902-000244

PATIENT
  Age: 65 Year
  Sex: Female

DRUGS (9)
  1. MIDODRINE [Suspect]
     Active Substance: MIDODRINE
     Indication: ORTHOSTATIC HYPOTENSION
  2. LOSARTAN. [Suspect]
     Active Substance: LOSARTAN
     Indication: SUPINE HYPERTENSION
     Dosage: AT BEDTIME
  3. LOSARTAN. [Suspect]
     Active Substance: LOSARTAN
     Dosage: AT BEDTIME
  4. DROXIDOPA [Suspect]
     Active Substance: DROXIDOPA
     Indication: ORTHOSTATIC HYPOTENSION
  5. MIDODRINE [Suspect]
     Active Substance: MIDODRINE
     Indication: SUPINE HYPERTENSION
  6. CLONIDINE. [Suspect]
     Active Substance: CLONIDINE
     Indication: SUPINE HYPERTENSION
     Dosage: AT BEDTIME
  7. MIDODRINE [Suspect]
     Active Substance: MIDODRINE
  8. CLONIDINE. [Suspect]
     Active Substance: CLONIDINE
     Indication: ORTHOSTATIC HYPOTENSION
     Dosage: AT BEDTIME
  9. DROXIDOPA [Suspect]
     Active Substance: DROXIDOPA
     Indication: SUPINE HYPERTENSION

REACTIONS (3)
  - Haemorrhagic stroke [Recovered/Resolved]
  - Disease recurrence [Recovered/Resolved]
  - Hypertension [Unknown]
